FAERS Safety Report 5679938-3 (Version None)
Quarter: 2008Q1

REPORT INFORMATION
  Report Type: 
  Country: None (occurrence: None)
  Receive Date: 20080324
  Receipt Date: 20080306
  Transmission Date: 20080703
  Serious: Yes (Hospitalization)
  Sender: FDA-Public Use
  Company Number: 2008EU000355

PATIENT
  Age: 57 Year
  Sex: Male

DRUGS (6)
  1. PROGRAF [Suspect]
     Indication: RENAL TRANSPLANT
     Dosage: ORAL
     Route: 048
     Dates: start: 20060101, end: 20060501
  2. NEORAL [Suspect]
     Indication: RENAL TRANSPLANT
     Dosage: ORAL
     Route: 048
     Dates: start: 20030301, end: 20060101
  3. MYFORTIC [Suspect]
     Indication: RENAL TRANSPLANT
     Dosage: ORAL
     Route: 048
     Dates: start: 20030301
  4. RAPAMUNE [Suspect]
     Indication: RENAL TRANSPLANT
     Dosage: ORAL
     Route: 048
     Dates: start: 20060501
  5. PREVISCAN (FLUINDIONE) [Concomitant]
  6. PREDNISONE [Concomitant]

REACTIONS (3)
  - AUTONOMIC NERVOUS SYSTEM IMBALANCE [None]
  - CEREBELLAR ATROPHY [None]
  - CEREBELLAR SYNDROME [None]
